FAERS Safety Report 15858061 (Version 1)
Quarter: 2019Q1

REPORT INFORMATION
  Report Type: Spontaneous
  Country: CA (occurrence: CA)
  Receive Date: 20190123
  Receipt Date: 20190123
  Transmission Date: 20190417
  Serious: Yes (Life-Threatening)
  Sender: FDA-Public Use
  Company Number: CA-JNJFOC-20190122093

PATIENT
  Age: 53 Year
  Sex: Male

DRUGS (1)
  1. SIMPONI [Suspect]
     Active Substance: GOLIMUMAB
     Indication: COLITIS ULCERATIVE
     Route: 058

REACTIONS (7)
  - Burkitt^s lymphoma [Unknown]
  - Computerised tomogram abdomen abnormal [Unknown]
  - Abdominal pain upper [Unknown]
  - Abdominal distension [Unknown]
  - Abdominal mass [Unknown]
  - Off label use [Unknown]
  - Product use issue [Unknown]
